FAERS Safety Report 9783098 (Version 1)
Quarter: 2013Q4

REPORT INFORMATION
  Report Type: Spontaneous
  Country: US (occurrence: US)
  Receive Date: 20131226
  Receipt Date: 20131226
  Transmission Date: 20140711
  Serious: No
  Sender: FDA-Public Use
  Company Number: US-TEVA-451630USA

PATIENT
  Sex: Male
  Weight: 86.26 kg

DRUGS (8)
  1. FENTORA [Suspect]
     Indication: BREAKTHROUGH PAIN
     Route: 002
     Dates: start: 201206
  2. FENTANYL [Concomitant]
     Indication: PAIN
     Route: 062
  3. LIPITOR [Concomitant]
     Indication: BLOOD CHOLESTEROL
  4. XANAX [Concomitant]
     Indication: ANXIETY
  5. TRICOR [Concomitant]
     Indication: BLOOD TRIGLYCERIDES
  6. ALOXI [Concomitant]
     Indication: NAUSEA
  7. COUMADIN [Concomitant]
     Indication: THROMBOSIS
  8. GLYBURIDE [Concomitant]
     Indication: DIABETES MELLITUS

REACTIONS (3)
  - Malaise [Not Recovered/Not Resolved]
  - Pain [Not Recovered/Not Resolved]
  - Gait disturbance [Not Recovered/Not Resolved]
